FAERS Safety Report 6983392-9 (Version None)
Quarter: 2010Q3

REPORT INFORMATION
  Report Type: 
  Country: None (occurrence: None)
  Receive Date: 20100914
  Receipt Date: 20100914
  Transmission Date: 20110219
  Serious: Yes (Other)
  Sender: FDA-Public Use
  Company Number: None

PATIENT
  Age: 18 Year
  Sex: Female
  Weight: 52.6173 kg

DRUGS (1)
  1. LEVAQUIN [Suspect]
     Indication: PNEUMONIA
     Dosage: IV; 750MG A PER DAY FOR 5 DAY PO
     Route: 042
     Dates: start: 20100903, end: 20100908

REACTIONS (6)
  - ABDOMINAL DISCOMFORT [None]
  - FATIGUE [None]
  - HEADACHE [None]
  - LETHARGY [None]
  - NO THERAPEUTIC RESPONSE [None]
  - PAIN IN EXTREMITY [None]
